FAERS Safety Report 24967834 (Version 1)
Quarter: 2025Q1

REPORT INFORMATION
  Report Type: Spontaneous
  Country: US (occurrence: US)
  Receive Date: 20250214
  Receipt Date: 20250214
  Transmission Date: 20250409
  Serious: Yes (Other)
  Sender: PHARMAESSENTIA
  Company Number: US-PHARMAESSENTIA CORPORATION-US-2025-PEC-005938

PATIENT
  Sex: Female

DRUGS (1)
  1. BESREMI [Suspect]
     Active Substance: ROPEGINTERFERON ALFA-2B-NJFT
     Indication: Essential thrombocythaemia
     Route: 058

REACTIONS (2)
  - Metastases to lung [Unknown]
  - Off label use [Unknown]
